FAERS Safety Report 14752453 (Version 1)
Quarter: 2018Q2

REPORT INFORMATION
  Report Type: Spontaneous
  Country: BR (occurrence: BR)
  Receive Date: 20180412
  Receipt Date: 20180412
  Transmission Date: 20180711
  Serious: Yes (Hospitalization)
  Sender: FDA-Public Use
  Company Number: BR-SA-2018SA101559

PATIENT
  Sex: Male
  Weight: 2.9 kg

DRUGS (1)
  1. CLEXANE [Suspect]
     Active Substance: ENOXAPARIN SODIUM
     Dosage: TRANSPLACENTARY AND TRANSMAMMARY

REACTIONS (3)
  - Exposure via breast milk [Unknown]
  - Gene mutation [Unknown]
  - Foetal exposure during pregnancy [Unknown]
